FAERS Safety Report 8444111-2 (Version None)
Quarter: 2012Q2

REPORT INFORMATION
  Report Type: 
  Country: None (occurrence: None)
  Receive Date: 20120618
  Receipt Date: 20120606
  Transmission Date: 20120825
  Serious: Yes (Death)
  Sender: FDA-Public Use
  Company Number: US-COVIDIEN/TYCO HEALTHCARE/MALLINCKRODT-T201202540

PATIENT
  Sex: Male

DRUGS (1)
  1. OPTIMARK [Suspect]
     Indication: ANGIOGRAM
     Dosage: 50 ML, SINGLE
     Dates: start: 20050620, end: 20050620

REACTIONS (1)
  - NEPHROGENIC SYSTEMIC FIBROSIS [None]
